FAERS Safety Report 4475388-6 (Version None)
Quarter: 2004Q4

REPORT INFORMATION
  Report Type: 
  Country: None (occurrence: None)
  Receive Date: 20041015
  Receipt Date: 20040107
  Transmission Date: 20050328
  Serious: Yes (Hospitalization, Other)
  Sender: FDA-Public Use
  Company Number: US-ABBOTT-04P-163-0246670-00

PATIENT
  Sex: Female
  Weight: 47.216 kg

DRUGS (23)
  1. HUMIRA [Suspect]
     Indication: RHEUMATOID ARTHRITIS
     Route: 058
     Dates: start: 20030301, end: 20040215
  2. HUMIRA [Suspect]
     Route: 058
     Dates: start: 20040314, end: 20040705
  3. HUMIRA [Suspect]
     Route: 058
     Dates: start: 20040812, end: 20040826
  4. METHOTREXATE SODIUM [Concomitant]
     Indication: RHEUMATOID ARTHRITIS
     Route: 048
     Dates: end: 20040831
  5. ONDANSETRON HCL [Concomitant]
     Indication: NAUSEA
     Route: 048
  6. HYDROXYCHLOROQUINE SULFATE [Concomitant]
     Indication: RHEUMATOID ARTHRITIS
     Route: 048
  7. METHYLPREDNISOLONE [Concomitant]
     Indication: RHEUMATOID ARTHRITIS
     Route: 048
  8. TRAMADOL HYDROCHLORIDE [Concomitant]
     Indication: RHEUMATOID ARTHRITIS
     Route: 048
  9. TRAMADOL HYDROCHLORIDE [Concomitant]
     Indication: OSTEOARTHRITIS
  10. FOLTEX [Concomitant]
     Indication: RHEUMATOID ARTHRITIS
     Route: 048
  11. METAXALONE [Concomitant]
     Indication: SCIATIC NERVE NEUROPATHY
     Route: 048
  12. RISEDRONATE SODIUM [Concomitant]
     Indication: OSTEOPENIA
     Route: 048
  13. ESOMEPRAZOLE [Concomitant]
     Indication: GASTRIC ULCER
     Route: 048
  14. SUCRALFATE [Concomitant]
     Indication: GASTRIC ULCER
     Route: 048
  15. SUMATRIPTAN SUCCINATE [Concomitant]
     Indication: MIGRAINE
     Route: 048
  16. NADOLOL [Concomitant]
     Indication: MIGRAINE PROPHYLAXIS
     Route: 048
  17. AXOTAL [Concomitant]
     Indication: HEADACHE
     Route: 048
  18. ESTRADIOL [Concomitant]
     Route: 061
  19. ALLEGRA-D [Concomitant]
     Route: 048
  20. GABAPENTIN [Concomitant]
     Indication: NEUROPATHY
     Route: 048
  21. RALOXIFENE HCL [Concomitant]
     Route: 048
  22. NYSTATIN [Concomitant]
     Indication: FUNGAL INFECTION
     Route: 048
  23. HYDROXYCHLOROQUINE SULFATE [Concomitant]
     Indication: RHEUMATOID ARTHRITIS
     Route: 048
     Dates: end: 20040831

REACTIONS (4)
  - CHRONIC SINUSITIS [None]
  - INTERVERTEBRAL DISC PROTRUSION [None]
  - NAUSEA [None]
  - RHEUMATOID ARTHRITIS [None]
